FAERS Safety Report 22119133 (Version 2)
Quarter: 2023Q2

REPORT INFORMATION
  Report Type: Spontaneous
  Country: JP (occurrence: JP)
  Receive Date: 20230321
  Receipt Date: 20230501
  Transmission Date: 20230721
  Serious: Yes (Other)
  Sender: FDA-Public Use
  Company Number: JP-TAKEDA-2023TJP003616AA

PATIENT
  Age: 8 Decade
  Sex: Male

DRUGS (1)
  1. CABOMETYX [Suspect]
     Active Substance: CABOZANTINIB S-MALATE
     Indication: Renal cell carcinoma
     Dosage: UNK
     Route: 048
     Dates: start: 20230126, end: 20230223

REACTIONS (3)
  - Skin disorder [Recovered/Resolved]
  - Lip pain [Recovering/Resolving]
  - Genital pain [Recovering/Resolving]

NARRATIVE: CASE EVENT DATE: 20230223
